FAERS Safety Report 9405944 (Version 2)
Quarter: 2013Q3

REPORT INFORMATION
  Report Type: Spontaneous
  Country: US (occurrence: US)
  Receive Date: 20130717
  Receipt Date: 20130801
  Transmission Date: 20140515
  Serious: No
  Sender: FDA-Public Use
  Company Number: US-009507513-1307USA006413

PATIENT
  Sex: Male

DRUGS (1)
  1. PROVENTIL [Suspect]
     Dosage: 2 PUFFS EVERY 4 TO 6 HOUR
     Route: 055

REACTIONS (3)
  - Drug dose omission [Recovered/Resolved]
  - Product quality issue [Unknown]
  - No adverse event [Unknown]
